FAERS Safety Report 23871495 (Version 2)
Quarter: 2024Q2

REPORT INFORMATION
  Report Type: Report from Study
  Country: CA (occurrence: CA)
  Receive Date: 20240519
  Receipt Date: 20240627
  Transmission Date: 20240715
  Serious: Yes (Other)
  Sender: FDA-Public Use
  Company Number: CA-JNJFOC-20240542266

PATIENT
  Age: 32 Year
  Sex: Female

DRUGS (2)
  1. SIMPONI [Suspect]
     Active Substance: GOLIMUMAB
     Indication: Ankylosing spondylitis
     Route: 058
     Dates: start: 20210913
  2. SIMPONI [Suspect]
     Active Substance: GOLIMUMAB
     Route: 058
     Dates: start: 20210921, end: 20240524

REACTIONS (2)
  - Breast abscess [Recovering/Resolving]
  - Off label use [Unknown]

NARRATIVE: CASE EVENT DATE: 20210913
